FAERS Safety Report 14945531 (Version 1)
Quarter: 2018Q2

REPORT INFORMATION
  Report Type: Spontaneous
  Country: IN (occurrence: IN)
  Receive Date: 20180529
  Receipt Date: 20180529
  Transmission Date: 20180711
  Serious: Yes (Other)
  Sender: FDA-Public Use
  Company Number: IN-BION-007183

PATIENT
  Age: 21 Year
  Sex: Male

DRUGS (2)
  1. CETIRIZINE/CETIRIZINE HYDROCHLORIDE [Suspect]
     Active Substance: CETIRIZINE HYDROCHLORIDE
     Indication: PRODUCT USED FOR UNKNOWN INDICATION
     Dosage: STANDARD ORAL PROVOCATION METHOD,  ONE-EIGHTH DOSE OF CETIRIZINE
     Route: 048
  2. LEVOCETIRIZINE/LEVOCETIRIZINE DIHYDROCHLORIDE [Suspect]
     Active Substance: LEVOCETIRIZINE DIHYDROCHLORIDE
     Indication: PRODUCT USED FOR UNKNOWN INDICATION
     Route: 048

REACTIONS (2)
  - Documented hypersensitivity to administered product [None]
  - Fixed eruption [Recovered/Resolved]
